FAERS Safety Report 7137118-9 (Version None)
Quarter: 2010Q4

REPORT INFORMATION
  Report Type: 
  Country: None (occurrence: None)
  Receive Date: 20101206
  Receipt Date: 20070402
  Transmission Date: 20110411
  Serious: Yes (Death)
  Sender: FDA-Public Use
  Company Number: US-ACTELION-A-US2006-14843

PATIENT

DRUGS (17)
  1. ILOPROST INHALATION SOLUTION 5UG US [Suspect]
     Indication: PULMONARY ARTERIAL HYPERTENSION
     Dosage: 5 UG, 5-6 X DAY
     Route: 055
     Dates: start: 20060518, end: 20070327
  2. ILOPROST INHALATION SOLUTION 5UG US [Suspect]
     Dosage: 2.5 UG, SINGLE
     Route: 055
     Dates: start: 20060518, end: 20060518
  3. TRACLEER [Concomitant]
     Indication: PULMONARY HYPERTENSION
     Dates: start: 20060519, end: 20070327
  4. PLAVIX [Concomitant]
  5. ASPIRIN [Concomitant]
  6. LIPITOR [Concomitant]
  7. COREG [Concomitant]
  8. DIGOXIN [Concomitant]
  9. LASIX [Concomitant]
  10. PREVACID [Concomitant]
     Dates: end: 20060519
  11. POTASSIUM CHLORIDE [Concomitant]
     Dates: end: 20060519
  12. ALTACE [Concomitant]
  13. SILDENAFIL [Concomitant]
     Dates: end: 20060519
  14. COUMADIN [Concomitant]
  15. PROTONIX [Concomitant]
  16. SPIRONOLACTONE [Concomitant]
  17. OXYGEN [Concomitant]

REACTIONS (3)
  - DEATH [None]
  - FATIGUE [None]
  - NAUSEA [None]
